FAERS Safety Report 7179779 (Version 3)
Quarter: 2020Q3

REPORT INFORMATION
  Report Type: Report from Study
  Country: RU (occurrence: RU)
  Receive Date: 20091118
  Receipt Date: 20100513
  Transmission Date: 20201105
  Serious: Yes (Hospitalization, Other)
  Sender: FDA-Public Use
  Company Number: RU-WYE-H12089309

PATIENT
  Age: 60 Year
  Sex: Female
  Weight: 97 kg

DRUGS (2)
  1. TEMSIROLIMUS. [Suspect]
     Active Substance: TEMSIROLIMUS
     Indication: RENAL CANCER
     Route: 042
     Dates: start: 20091022, end: 20091109
  2. BEVACIZUMAB. [Suspect]
     Active Substance: BEVACIZUMAB
     Indication: RENAL CANCER
     Route: 042
     Dates: start: 20091022, end: 20091109

REACTIONS (1)
  - Hyperglycaemia [Not Recovered/Not Resolved]

NARRATIVE: CASE EVENT DATE: 20091102
